FAERS Safety Report 13372939 (Version 4)
Quarter: 2017Q2

REPORT INFORMATION
  Report Type: Spontaneous
  Country: US (occurrence: US)
  Receive Date: 20170327
  Receipt Date: 20170522
  Transmission Date: 20170830
  Serious: Yes (Hospitalization, Other)
  Sender: FDA-Public Use
  Company Number: US-JNJFOC-20170325429

PATIENT
  Age: 68 Year
  Sex: Male

DRUGS (3)
  1. OBINUTUZUMAB [Suspect]
     Active Substance: OBINUTUZUMAB
     Indication: CHRONIC LYMPHOCYTIC LEUKAEMIA
     Route: 042
     Dates: start: 20160607, end: 20161205
  2. IMBRUVICA [Suspect]
     Active Substance: IBRUTINIB
     Indication: CHRONIC LYMPHOCYTIC LEUKAEMIA
     Route: 048
     Dates: start: 20160711, end: 20170206
  3. IMBRUVICA [Suspect]
     Active Substance: IBRUTINIB
     Indication: CHRONIC LYMPHOCYTIC LEUKAEMIA
     Route: 048
     Dates: start: 20170213

REACTIONS (20)
  - Abdominal pain [Unknown]
  - Acute kidney injury [Recovering/Resolving]
  - Vomiting [Unknown]
  - Peritonitis [Unknown]
  - Cellulitis [Unknown]
  - Malnutrition [Unknown]
  - Clostridium test positive [Unknown]
  - Abdominal abscess [Unknown]
  - Neutrophil count decreased [Recovered/Resolved]
  - Aspartate aminotransferase increased [Unknown]
  - Nausea [Unknown]
  - Peritonitis [Unknown]
  - Body temperature increased [Unknown]
  - Diarrhoea [Unknown]
  - Peripheral swelling [Unknown]
  - Atrial fibrillation [Recovered/Resolved]
  - Lumbar radiculopathy [Unknown]
  - Infectious colitis [Unknown]
  - Back pain [Unknown]
  - Bacterial sepsis [Recovering/Resolving]

NARRATIVE: CASE EVENT DATE: 20170205
